FAERS Safety Report 7207164-5 (Version None)
Quarter: 2011Q1

REPORT INFORMATION
  Report Type: 
  Country: None (occurrence: None)
  Receive Date: 20110103
  Receipt Date: 20101223
  Transmission Date: 20110831
  Serious: No
  Sender: FDA-Public Use
  Company Number: FR-ROCHE-728014

PATIENT
  Sex: Female
  Weight: 51 kg

DRUGS (5)
  1. BONIVA [Suspect]
     Indication: OSTEOPOROSIS
     Route: 048
     Dates: start: 20091101, end: 20100801
  2. ASPEGIC 250 [Concomitant]
     Indication: AMAUROSIS
     Dates: start: 19850101
  3. BRONCHODUAL [Concomitant]
     Indication: BRONCHITIS
     Route: 055
     Dates: start: 20100601
  4. MIFLASONE [Concomitant]
     Indication: BRONCHITIS
     Route: 055
     Dates: start: 20100601
  5. CALTRATE [Concomitant]
     Route: 048
     Dates: start: 19950101

REACTIONS (1)
  - DERMATITIS BULLOUS [None]
